FAERS Safety Report 8255696-3 (Version None)
Quarter: 2012Q2

REPORT INFORMATION
  Report Type: 
  Country: None (occurrence: None)
  Receive Date: 20120403
  Receipt Date: 20120403
  Transmission Date: 20120825
  Serious: Yes (Life-Threatening)
  Sender: FDA-Public Use
  Company Number: None

PATIENT
  Sex: Female
  Weight: 74.389 kg

DRUGS (1)
  1. RECLAST [Suspect]
     Indication: OSTEOPOROSIS
     Dosage: 5MG
     Route: 042
     Dates: start: 20090817, end: 20090817

REACTIONS (25)
  - VASCULITIS [None]
  - ENLARGED CEREBRAL PERIVASCULAR SPACES [None]
  - DYSPNOEA [None]
  - VOMITING [None]
  - HYPERHIDROSIS [None]
  - PYREXIA [None]
  - OEDEMA PERIPHERAL [None]
  - ENCEPHALOMALACIA [None]
  - NAUSEA [None]
  - ESCHERICHIA URINARY TRACT INFECTION [None]
  - WEIGHT DECREASED [None]
  - CYST [None]
  - SINUS HEADACHE [None]
  - INFECTED CYST [None]
  - PRIMARY SEQUESTRUM [None]
  - OSTEOMA [None]
  - HAEMANGIOMA [None]
  - ACUTE SINUSITIS [None]
  - HEADACHE [None]
  - CHILLS [None]
  - DIARRHOEA [None]
  - ABDOMINAL PAIN [None]
  - HYPOXIA [None]
  - INFECTION [None]
  - PULMONARY FIBROSIS [None]
